FAERS Safety Report 13774820 (Version 1)
Quarter: 2017Q3

REPORT INFORMATION
  Report Type: Spontaneous
  Country: AU (occurrence: AU)
  Receive Date: 20170720
  Receipt Date: 20170720
  Transmission Date: 20171127
  Serious: Yes (Other)
  Sender: FDA-Public Use
  Company Number: PHHY2017AU102046

PATIENT
  Age: 24 Year
  Sex: Male

DRUGS (1)
  1. CLARITHROMYCIN SANDOZ [Suspect]
     Active Substance: CLARITHROMYCIN
     Indication: HELICOBACTER GASTRITIS
     Dosage: 250 MG, BID
     Route: 065
     Dates: start: 20170630

REACTIONS (7)
  - Insomnia [Unknown]
  - Amnesia [Unknown]
  - Dizziness [Unknown]
  - Confusional state [Unknown]
  - Pain in extremity [Unknown]
  - Dysuria [Unknown]
  - Drug ineffective [Unknown]

NARRATIVE: CASE EVENT DATE: 201707
